FAERS Safety Report 6712123-2 (Version None)
Quarter: 2010Q2

REPORT INFORMATION
  Report Type: 
  Country: None (occurrence: None)
  Receive Date: 20100505
  Receipt Date: 20090825
  Transmission Date: 20101027
  Serious: Yes (Other)
  Sender: FDA-Public Use
  Company Number: US-PFIZER INC-2009261246

PATIENT
  Sex: Female
  Weight: 86.168 kg

DRUGS (12)
  1. CHANTIX [Suspect]
     Indication: SMOKING CESSATION THERAPY
     Dosage: UNK
     Route: 048
     Dates: start: 20090822
  2. CHANTIX [Suspect]
     Dosage: 0.5 MG, 1X/DAY
     Dates: start: 20090825
  3. CHANTIX [Suspect]
     Dosage: 1 MG, 2X/DAY
  4. ELAVIL [Concomitant]
     Dosage: 100 MG, UNK
  5. BUMETANIDE [Concomitant]
     Dosage: 2.5 MG, UNK
  6. WELLBUTRIN [Concomitant]
     Dosage: 300 MG, UNK
  7. KLONOPIN [Concomitant]
     Dosage: 1 MG, 3X/DAY
  8. SYNTHROID [Concomitant]
     Dosage: 0.075 MG, 1X/DAY
  9. SKELAXIN [Concomitant]
     Dosage: FREQUENCY: 3X/DAY,
  10. MORPHIN [Concomitant]
     Dosage: 60 MG, 3X/DAY
  11. PERCOCET [Concomitant]
     Dosage: 7.5 MG, 4X/DAY
  12. GEODON [Concomitant]
     Dosage: 180 MG, UNK

REACTIONS (8)
  - AGGRESSION [None]
  - AGITATION [None]
  - ANGER [None]
  - ARTHRITIS [None]
  - DEPRESSION [None]
  - HOSTILITY [None]
  - NERVOUSNESS [None]
  - SPONDYLITIS [None]
